FAERS Safety Report 6309076-8 (Version None)
Quarter: 2009Q3

REPORT INFORMATION
  Report Type: 
  Country: None (occurrence: None)
  Receive Date: 20090814
  Receipt Date: 20071203
  Transmission Date: 20100115
  Serious: Yes (Other)
  Sender: FDA-Public Use
  Company Number: US-ASTRAZENECA-2007UW02162

PATIENT
  Age: 51 Year
  Sex: Female
  Weight: 84.4 kg

DRUGS (27)
  1. SEROQUEL [Suspect]
     Indication: BIPOLAR DISORDER
     Dosage: 25 MG - 350 MG
     Route: 048
     Dates: start: 20010201
  2. SEROQUEL [Suspect]
     Indication: INSOMNIA
     Dosage: 25 MG - 350 MG
     Route: 048
     Dates: start: 20010201
  3. SEROQUEL [Suspect]
     Indication: SLEEP DISORDER
     Dosage: 25 MG - 350 MG
     Route: 048
     Dates: start: 20010201
  4. SEROQUEL [Suspect]
     Dosage: 25 MG TO 300 MG
     Route: 048
     Dates: start: 20010201
  5. SEROQUEL [Suspect]
     Dosage: 25 MG TO 300 MG
     Route: 048
     Dates: start: 20010201
  6. SEROQUEL [Suspect]
     Dosage: 25 MG TO 300 MG
     Route: 048
     Dates: start: 20010201
  7. RISPERDAL [Concomitant]
     Dates: start: 19970101, end: 20020201
  8. RISPERDAL [Concomitant]
     Dates: start: 20001018, end: 20020225
  9. RISPERDAL [Concomitant]
     Dates: start: 20061222
  10. PREDNISONE [Concomitant]
     Indication: UPPER RESPIRATORY TRACT INFECTION
     Dosage: 5 MG TO 60 MG
     Dates: start: 20010115
  11. PREDNISONE [Concomitant]
     Dosage: 10 MG TO 60 MG
     Dates: start: 20031219
  12. PREDNISONE [Concomitant]
     Dosage: 20 MG TO 60 MG
     Dates: start: 20040326
  13. STELAZINE [Concomitant]
     Dates: end: 19970101
  14. LITHOBID [Concomitant]
     Dates: start: 19970101, end: 19970101
  15. LITHOBID [Concomitant]
     Dosage: 900 MG- 1200 MG
     Dates: start: 20030201, end: 20040301
  16. LAMICTAL [Concomitant]
     Dates: start: 20030301, end: 20040301
  17. PREMPHASE 14/14 [Concomitant]
     Dates: start: 20030711
  18. FEMHRT [Concomitant]
     Dosage: 1/2 TO 1 TAB DAILY
     Route: 048
     Dates: start: 20040401
  19. CLARITIN [Concomitant]
     Route: 048
     Dates: start: 20020513
  20. WELLBUTRIN SR [Concomitant]
     Dosage: 200 MG TO 300 MG
     Dates: start: 20001116
  21. RESTORIL [Concomitant]
     Dosage: 15 MG TO 30 MG
     Dates: start: 20001113
  22. KLONOPIN [Concomitant]
     Dosage: 1 MG TO 4 MG
     Route: 048
     Dates: start: 20001018
  23. CELEXA [Concomitant]
     Dosage: 20 MG TO 60 MG
     Dates: start: 20001018
  24. INTERFERON [Concomitant]
     Dates: start: 20020503
  25. RIBAVIRIN [Concomitant]
     Dates: start: 20020513
  26. ZOMIG [Concomitant]
     Dosage: 2 MG TO 5 MG
     Dates: start: 20001223
  27. LEXAPRO [Concomitant]
     Route: 048
     Dates: start: 20040929

REACTIONS (17)
  - ANAEMIA [None]
  - BLOOD ALKALINE PHOSPHATASE INCREASED [None]
  - BUNION OPERATION [None]
  - CATARACT [None]
  - DECREASED APPETITE [None]
  - DIABETES MELLITUS [None]
  - DIABETES MELLITUS INADEQUATE CONTROL [None]
  - DIABETIC NEUROPATHY [None]
  - GLAUCOMA [None]
  - HEPATITIS C [None]
  - HYPERPROLACTINAEMIA [None]
  - HYPOTHYROIDISM [None]
  - OVERDOSE [None]
  - SUICIDE ATTEMPT [None]
  - TYPE 2 DIABETES MELLITUS [None]
  - WEIGHT DECREASED [None]
  - WEIGHT INCREASED [None]
